FAERS Safety Report 9154906 (Version 1)
Quarter: 2013Q1

REPORT INFORMATION
  Report Type: Spontaneous
  Country: US (occurrence: None)
  Receive Date: 20130305
  Receipt Date: 20130305
  Transmission Date: 20140127
  Serious: No
  Sender: FDA-Public Use
  Company Number: None

PATIENT
  Age: 71 Year
  Sex: Male
  Weight: 102.3 kg

DRUGS (3)
  1. CLONAZEPAM [Suspect]
     Indication: HYPERTENSION
     Dosage: ~01/01/2013 THRU ~02/04/2013?1 MG PRN PO
     Route: 048
     Dates: start: 20130101, end: 20130204
  2. CLONAZEPAM [Suspect]
     Indication: STRESS
     Dosage: ~01/01/2013 THRU ~02/04/2013?1 MG PRN PO
     Route: 048
     Dates: start: 20130101, end: 20130204
  3. CLONAZEPAM [Suspect]
     Indication: ANXIETY
     Dosage: ~01/01/2013 THRU ~02/04/2013?1 MG PRN PO
     Route: 048
     Dates: start: 20130101, end: 20130204

REACTIONS (1)
  - Loss of consciousness [None]
